FAERS Safety Report 8960577 (Version 1)
Quarter: 2012Q4

REPORT INFORMATION
  Report Type: Spontaneous
  Country: GB (occurrence: None)
  Receive Date: 20121203
  Receipt Date: 20121203
  Transmission Date: 20130627
  Serious: Yes (Other)
  Sender: FDA-Public Use
  Company Number: 2012GB0410

PATIENT
  Age: 68 Year
  Sex: Male

DRUGS (4)
  1. KINERET [Suspect]
     Indication: RHEUMATOID ARTHRITIS
     Dosage: (100 mg, 1 in 1 D)
     Route: 058
     Dates: start: 20020717, end: 20030315
  2. OTHER BIOLOGIC (BIOLOGIC) [Concomitant]
  3. METHOTREXATE (METHOTREXATE) [Concomitant]
  4. STEROIDS (STEROIDS) [Concomitant]

REACTIONS (1)
  - Carcinoma in situ of skin [None]
